FAERS Safety Report 8432923-0 (Version None)
Quarter: 2012Q2

REPORT INFORMATION
  Report Type: 
  Country: None (occurrence: None)
  Receive Date: 20120613
  Receipt Date: 20120611
  Transmission Date: 20120825
  Serious: Yes (Death, Hospitalization, Other)
  Sender: FDA-Public Use
  Company Number: GB-ROCHE-1036982

PATIENT
  Sex: Female

DRUGS (7)
  1. LUCENTIS [Suspect]
     Route: 050
     Dates: start: 20110415
  2. FUROSEMIDE [Concomitant]
  3. LUCENTIS [Suspect]
     Indication: AGE-RELATED MACULAR DEGENERATION
     Route: 050
     Dates: start: 20091204
  4. LOPERAMIDE [Concomitant]
  5. ACETAMINOPHEN [Concomitant]
  6. LEVOTHYROXINE SODIUM [Concomitant]
     Dates: start: 20090912
  7. RABEPRAZOLE SODIUM [Concomitant]

REACTIONS (4)
  - METASTASES TO LARGE INTESTINE [None]
  - BRONCHOPNEUMONIA [None]
  - CARDIAC FAILURE CONGESTIVE [None]
  - COLON CANCER [None]
